FAERS Safety Report 15084450 (Version 1)
Quarter: 2018Q2

REPORT INFORMATION
  Report Type: Spontaneous
  Country: US (occurrence: US)
  Receive Date: 20180628
  Receipt Date: 20180628
  Transmission Date: 20180711
  Serious: No
  Sender: FDA-Public Use
  Company Number: US-TEVA-2018-US-912521

PATIENT
  Sex: Male

DRUGS (1)
  1. TESTOSTERONE. [Suspect]
     Active Substance: TESTOSTERONE
     Indication: HYPOGONADISM
     Route: 065
     Dates: start: 2013

REACTIONS (2)
  - Product storage error [Unknown]
  - Sinusitis [Unknown]

NARRATIVE: CASE EVENT DATE: 2015
